FAERS Safety Report 6841675-7 (Version None)
Quarter: 2010Q3

REPORT INFORMATION
  Report Type: 
  Country: None (occurrence: None)
  Receive Date: 20100714
  Receipt Date: 20070711
  Transmission Date: 20110219
  Serious: No
  Sender: FDA-Public Use
  Company Number: US-PFIZER INC-2007059057

PATIENT
  Sex: Male
  Weight: 86.2 kg

DRUGS (3)
  1. CHANTIX [Suspect]
     Indication: SMOKING CESSATION THERAPY
     Dates: start: 20070709
  2. NAVANE [Suspect]
     Indication: SLEEP DISORDER
  3. LORAZEPAM [Concomitant]
     Indication: SLEEP DISORDER

REACTIONS (1)
  - INSOMNIA [None]
